FAERS Safety Report 21518736 (Version 1)
Quarter: 2022Q4

REPORT INFORMATION
  Report Type: Spontaneous
  Country: JP (occurrence: JP)
  Receive Date: 20221028
  Receipt Date: 20221028
  Transmission Date: 20230113
  Serious: Yes (Death, Hospitalization)
  Sender: FDA-Public Use
  Company Number: JP-STRIDES ARCOLAB LIMITED-2022SP014029

PATIENT
  Age: 32 Year
  Sex: Female

DRUGS (16)
  1. METHOTREXATE [Suspect]
     Active Substance: METHOTREXATE
     Indication: Prophylaxis against graft versus host disease
     Dosage: UNK
     Route: 065
  2. PREDNISOLONE [Suspect]
     Active Substance: PREDNISOLONE
     Indication: Dermatomyositis
     Dosage: 10 MILLIGRAM/DAY
     Route: 065
  3. PREDNISOLONE [Suspect]
     Active Substance: PREDNISOLONE
     Dosage: 1 MILLIGRAM/KILOGRAM(ON THE DAY 24 OF THE ADMISSION 1 MG/KG OF PREDNISOLONE WAS COMMENCED)
     Route: 065
  4. CYCLOSPORINE [Suspect]
     Active Substance: CYCLOSPORINE
     Indication: Dermatomyositis
     Dosage: UNK (ON THE DAY 24 OF THE ADMISSION CYCLOSPORINE WAS COMMENCED)
     Route: 065
  5. CYCLOSPORINE [Suspect]
     Active Substance: CYCLOSPORINE
     Indication: Prophylaxis against graft versus host disease
     Dosage: UNK
     Route: 065
  6. CYCLOPHOSPHAMIDE [Suspect]
     Active Substance: CYCLOPHOSPHAMIDE
     Indication: Dermatomyositis
     Dosage: 500 MILLIGRAM/SQ. METER(500 MG/M2 ON THE DAY 75 AFTER THE ADMISSION)
     Route: 065
  7. CYCLOPHOSPHAMIDE [Suspect]
     Active Substance: CYCLOPHOSPHAMIDE
     Dosage: 750 MILLIGRAM/SQ. METER(750 MG/M2 ON THE DAY 89 AFTER THE ADMISSION)
     Route: 065
  8. CYCLOPHOSPHAMIDE [Suspect]
     Active Substance: CYCLOPHOSPHAMIDE
     Dosage: 1000 MILLIGRAM/SQ. METER(ADDITIONAL DOSE OF 1000 MG/M2 WAS ADMINISTRATED 103 AND 117 DAYS AFTER THE
     Route: 065
  9. MITOXANTRONE [Concomitant]
     Active Substance: MITOXANTRONE HYDROCHLORIDE
     Indication: Acute myeloid leukaemia
     Dosage: UNK
     Route: 065
  10. CYTARABINE [Concomitant]
     Active Substance: CYTARABINE
     Indication: Acute myeloid leukaemia
     Dosage: UNK
     Route: 065
  11. CYTARABINE [Concomitant]
     Active Substance: CYTARABINE
     Dosage: UNK, CYCLICAL (3 CYCLES OF HIGH-DOSE CYTARABINE)
     Route: 065
  12. CYTARABINE [Concomitant]
     Active Substance: CYTARABINE
     Dosage: UNK, CYCLICAL (1 CYCLE OF HIGH-DOSE CYTARABINE)
     Route: 065
  13. CYTARABINE [Concomitant]
     Active Substance: CYTARABINE
     Dosage: UNK, CYCLICAL (1 CYCLE OF A COMBINATION THERAPY WITH CYTARABINE, ACLARUBICIN AND GEMTUZUMAB OZOGAMIC
     Route: 065
  14. ETOPOSIDE [Concomitant]
     Active Substance: ETOPOSIDE
     Indication: Acute myeloid leukaemia
     Dosage: UNK
     Route: 065
  15. ACLARUBICIN [Concomitant]
     Active Substance: ACLARUBICIN
     Indication: Acute myeloid leukaemia
     Dosage: UNK, CYCLICAL (1 CYCLE OF A COMBINATION THERAPY WITH CYTARABINE, ACLARUBICIN AND GEMTUZUMAB OZOGAMIC
     Route: 065
  16. GEMTUZUMAB OZOGAMICIN [Concomitant]
     Active Substance: GEMTUZUMAB OZOGAMICIN
     Indication: Acute myeloid leukaemia
     Dosage: UNK, CYCLICAL (1 CYCLE OF A COMBINATION THERAPY WITH CYTARABINE, ACLARUBICIN AND GEMTUZUMAB OZOGAMIC
     Route: 065

REACTIONS (4)
  - Drug ineffective [Fatal]
  - Graft versus host disease in liver [Unknown]
  - Chronic graft versus host disease [Unknown]
  - Off label use [Unknown]
